FAERS Safety Report 23295884 (Version 4)
Quarter: 2024Q1

REPORT INFORMATION
  Report Type: Report from Study
  Country: ZA (occurrence: ZA)
  Receive Date: 20231214
  Receipt Date: 20240122
  Transmission Date: 20240410
  Serious: Yes (Death)
  Sender: FDA-Public Use
  Company Number: ZA-MYLANLABS-2023M1119990

PATIENT
  Age: 48 Year
  Sex: Male
  Weight: 50 kg

DRUGS (10)
  1. DELAMANID [Suspect]
     Active Substance: DELAMANID
     Indication: Tuberculosis
     Dosage: 300 MILLIGRAM, QD
     Route: 048
     Dates: start: 20221028
  2. LINEZOLID [Suspect]
     Active Substance: LINEZOLID
     Indication: Tuberculosis
     Dosage: 1200 MILLIGRAM, QD
     Route: 048
     Dates: start: 20221028, end: 20221123
  3. LINEZOLID [Suspect]
     Active Substance: LINEZOLID
     Dosage: 1200 MILLIGRAM, THREE TIMES A WEEK
     Route: 048
     Dates: start: 20221124
  4. BEDAQUILINE [Suspect]
     Active Substance: BEDAQUILINE
     Indication: Tuberculosis
     Dosage: 200 MILLIGRAM, QD
     Route: 048
     Dates: start: 20221028, end: 20221221
  5. BEDAQUILINE [Suspect]
     Active Substance: BEDAQUILINE
     Dosage: 100 MILLIGRAM, QD
     Route: 048
     Dates: start: 20221222
  6. CLOFAZIMINE [Suspect]
     Active Substance: CLOFAZIMINE
     Indication: Tuberculosis
     Dosage: 300 MILLIGRAM, QD
     Route: 048
     Dates: start: 20221028, end: 20221110
  7. CLOFAZIMINE [Suspect]
     Active Substance: CLOFAZIMINE
     Dosage: 100 MILLIGRAM, QD
     Route: 048
     Dates: start: 20221111
  8. HYDROCHLOROTHIAZIDE [Concomitant]
     Active Substance: HYDROCHLOROTHIAZIDE
     Indication: Hypertension
     Dosage: UNK
     Route: 065
     Dates: start: 20230428, end: 20230908
  9. AMLODIPINE [Concomitant]
     Active Substance: AMLODIPINE BESYLATE
     Dosage: UNK
     Route: 065
     Dates: start: 20230525, end: 20230908
  10. DOLUTEGRAVIR\LAMIVUDINE\TENOFOVIR [Concomitant]
     Active Substance: DOLUTEGRAVIR\LAMIVUDINE\TENOFOVIR
     Indication: HIV infection
     Dosage: UNK
     Route: 065

REACTIONS (1)
  - Tuberculous pleurisy [Fatal]

NARRATIVE: CASE EVENT DATE: 20230909
